FAERS Safety Report 20741830 (Version 2)
Quarter: 2022Q4

REPORT INFORMATION
  Report Type: Report from Study
  Country: US (occurrence: US)
  Receive Date: 20220423
  Receipt Date: 20221111
  Transmission Date: 20230113
  Serious: Yes (Other)
  Sender: FDA-Public Use
  Company Number: US-BRISTOL-MYERS SQUIBB COMPANY-2022-023839

PATIENT
  Age: 79 Year
  Sex: Female
  Weight: 70.31 kg

DRUGS (4)
  1. POMALYST [Suspect]
     Active Substance: POMALIDOMIDE
     Indication: Plasma cell myeloma
     Dosage: FREQUENCY: DAYS 1-21 7 DAYS OFF?21 OUT OF 28 DAYS?LOT NO: C2513A, EXPIRY DATE: 30-NOV-2025
     Route: 048
     Dates: start: 20210520
  2. POMALYST [Suspect]
     Active Substance: POMALIDOMIDE
  3. DEXAMETHASONE [Concomitant]
     Active Substance: DEXAMETHASONE
     Indication: Product used for unknown indication
     Route: 065
  4. XARELTO [Concomitant]
     Active Substance: RIVAROXABAN
     Indication: Product used for unknown indication
     Route: 065

REACTIONS (3)
  - Arthritis [Unknown]
  - Glaucoma [Unknown]
  - Cataract [Unknown]
